FAERS Safety Report 21172541 (Version 3)
Quarter: 2023Q1

REPORT INFORMATION
  Report Type: Spontaneous
  Country: US (occurrence: US)
  Receive Date: 20220804
  Receipt Date: 20230104
  Transmission Date: 20230418
  Serious: No
  Sender: FDA-Public Use
  Company Number: US-BRISTOL-MYERS SQUIBB COMPANY-2022-075702

PATIENT
  Age: 78 Year
  Sex: Female
  Weight: 65.77 kg

DRUGS (2)
  1. REVLIMID [Suspect]
     Active Substance: LENALIDOMIDE
     Indication: Plasma cell myeloma
     Dosage: EXPIRATION DATE-31-MAY-2021?FREQUENCY-1 CAP PO QOD
     Route: 048
     Dates: start: 20220622
  2. REVLIMID [Suspect]
     Active Substance: LENALIDOMIDE
     Dosage: FREQ: 14 DAYS OF 21 DAYS
     Route: 048

REACTIONS (6)
  - Rash [Unknown]
  - Blister [Unknown]
  - Dry mouth [Unknown]
  - Erythema [Unknown]
  - Off label use [Unknown]
  - Peripheral swelling [Recovering/Resolving]
